FAERS Safety Report 24859222 (Version 2)
Quarter: 2025Q1

REPORT INFORMATION
  Report Type: Spontaneous
  Country: US (occurrence: US)
  Receive Date: 20250118
  Receipt Date: 20250203
  Transmission Date: 20250408
  Serious: Yes (Other)
  Sender: BRISTOL-MYERS SQUIBB COMPANY
  Company Number: US-BRISTOL-MYERS SQUIBB COMPANY-2025-007883

PATIENT
  Age: 75 Year
  Sex: Female
  Weight: 54.5 kg

DRUGS (16)
  1. KRAZATI [Suspect]
     Active Substance: ADAGRASIB
     Indication: Adenocarcinoma of colon
     Dosage: 200 MG, TAKE 3 TABLETS (600 MG TOTAL) BY MOUTH DAILY. TAKE AT THE SAME TIME EACH DAY WITHOUT REGARD
     Route: 048
  2. CETUXIMAB [Suspect]
     Active Substance: CETUXIMAB
     Indication: Adenocarcinoma of colon
  3. COZAAR [Concomitant]
     Active Substance: LOSARTAN POTASSIUM
     Indication: Product used for unknown indication
     Route: 048
  4. COZAAR [Concomitant]
     Active Substance: LOSARTAN POTASSIUM
     Route: 048
  5. COREG [Concomitant]
     Active Substance: CARVEDILOL
     Indication: Product used for unknown indication
     Dosage: WITH MEALS
     Route: 048
  6. TYLENOL [Concomitant]
     Active Substance: ACETAMINOPHEN
     Indication: Product used for unknown indication
     Route: 048
  7. ADVIL [Concomitant]
     Active Substance: IBUPROFEN
     Indication: Product used for unknown indication
     Dosage: AS NEEDED
     Route: 048
  8. MOTRIN [Concomitant]
     Active Substance: IBUPROFEN
     Indication: Product used for unknown indication
     Dosage: AS NEEDED
     Route: 048
  9. MELATONIN [Concomitant]
     Active Substance: MELATONIN
     Indication: Product used for unknown indication
     Dosage: NIGHTLY
     Route: 048
  10. DULCOLAX (BISACODYL) [Concomitant]
     Active Substance: BISACODYL
     Indication: Constipation
     Route: 048
  11. BISACODYL [Concomitant]
     Active Substance: BISACODYL
     Indication: Constipation
     Route: 048
  12. SODIUM CHLORIDE [Concomitant]
     Active Substance: SODIUM CHLORIDE
     Indication: Product used for unknown indication
     Dosage: PRN
     Route: 042
  13. SODIUM CHLORIDE [Concomitant]
     Active Substance: SODIUM CHLORIDE
     Route: 042
  14. CLARITIN [Concomitant]
     Active Substance: LORATADINE
     Indication: Product used for unknown indication
     Route: 048
  15. ERBITUX [Concomitant]
     Active Substance: CETUXIMAB
     Indication: Product used for unknown indication
     Route: 042
  16. HEPARIN [Concomitant]
     Active Substance: HEPARIN SODIUM
     Indication: Product used for unknown indication
     Route: 042

REACTIONS (25)
  - Nausea [Recovering/Resolving]
  - Electrocardiogram QT prolonged [Unknown]
  - Fatigue [Unknown]
  - Somnolence [Unknown]
  - Vomiting [Recovering/Resolving]
  - Malaise [Unknown]
  - Hypokalaemia [Unknown]
  - Dyspnoea exertional [Unknown]
  - Oedema peripheral [Unknown]
  - Decreased appetite [Unknown]
  - Diarrhoea [Unknown]
  - Abdominal pain upper [Unknown]
  - Micturition urgency [Unknown]
  - Dysuria [Unknown]
  - Skin warm [Unknown]
  - Dry skin [Unknown]
  - Pain in extremity [Recovering/Resolving]
  - Arthralgia [Recovering/Resolving]
  - Ascites [Unknown]
  - Nodule [Unknown]
  - Colitis [Unknown]
  - Metastases to liver [Unknown]
  - Pulmonary mass [Unknown]
  - Abdominal pain lower [Unknown]
  - Performance status decreased [Unknown]
